FAERS Safety Report 5854805-0 (Version None)
Quarter: 2008Q3

REPORT INFORMATION
  Report Type: 
  Country: None (occurrence: None)
  Receive Date: 20080822
  Receipt Date: 20080121
  Transmission Date: 20090109
  Serious: No
  Sender: FDA-Public Use
  Company Number: US-ABBOTT-08P-163-0434757-00

PATIENT
  Age: 37 Year
  Sex: Female
  Weight: 65.83 kg

DRUGS (1)
  1. SYNTHROID [Suspect]
     Indication: HYPOTHYROIDISM
     Route: 048
     Dates: start: 20071221

REACTIONS (4)
  - BRONCHITIS [None]
  - COUGH [None]
  - FATIGUE [None]
  - OROPHARYNGEAL PAIN [None]
